FAERS Safety Report 21651557 (Version 2)
Quarter: 2022Q4

REPORT INFORMATION
  Report Type: Spontaneous
  Country: FR (occurrence: FR)
  Receive Date: 20221128
  Receipt Date: 20221129
  Transmission Date: 20230113
  Serious: Yes (Hospitalization)
  Sender: FDA-Public Use
  Company Number: FR-PFIZER INC-PV202200109710

PATIENT
  Sex: Female

DRUGS (1)
  1. IBRANCE [Suspect]
     Active Substance: PALBOCICLIB
     Dosage: 125 UNK, FOR 3 COURSES

REACTIONS (3)
  - Respiratory distress [Unknown]
  - Respiratory tract infection [Unknown]
  - Neoplasm progression [Unknown]
